FAERS Safety Report 13769377 (Version 3)
Quarter: 2017Q4

REPORT INFORMATION
  Report Type: Spontaneous
  Country: JP (occurrence: JP)
  Receive Date: 20170719
  Receipt Date: 20171215
  Transmission Date: 20180320
  Serious: Yes (Hospitalization)
  Sender: FDA-Public Use
  Company Number: JP-ASTRAZENECA-2017SE72926

PATIENT
  Age: 62 Year
  Sex: Male

DRUGS (5)
  1. GLACTIV [Concomitant]
     Active Substance: SITAGLIPTIN
     Route: 048
  2. HALFDIGOXIN [Concomitant]
     Active Substance: DIGOXIN
     Route: 048
  3. LUPRAC [Concomitant]
     Active Substance: TORSEMIDE
     Route: 048
  4. FORXIGA [Suspect]
     Active Substance: DAPAGLIFLOZIN
     Indication: TYPE 2 DIABETES MELLITUS
     Route: 048
     Dates: start: 20170221, end: 20170425
  5. XARELTO [Concomitant]
     Active Substance: RIVAROXABAN
     Route: 048

REACTIONS (2)
  - Pneumonia bacterial [Recovering/Resolving]
  - Interstitial lung disease [Recovering/Resolving]

NARRATIVE: CASE EVENT DATE: 20170425
